FAERS Safety Report 5284263-9 (Version None)
Quarter: 2007Q2

REPORT INFORMATION
  Report Type: 
  Country: None (occurrence: None)
  Receive Date: 20070403
  Receipt Date: 20070323
  Transmission Date: 20071010
  Serious: Yes (Other)
  Sender: FDA-Public Use
  Company Number: NO-MAADVRE-RELISS-2007-3778

PATIENT
  Sex: Female

DRUGS (5)
  1. XANOR [Suspect]
     Indication: ANXIETY
     Dosage: DAILY DOSE:11MG
     Dates: start: 19970101, end: 20070312
  2. ASCORBIC ACID [Concomitant]
  3. MELATONIN [Concomitant]
  4. CIPRALEX [Concomitant]
  5. DESLORATADINE [Concomitant]

REACTIONS (2)
  - DRUG TOLERANCE [None]
  - DRUG WITHDRAWAL SYNDROME [None]
